FAERS Safety Report 9820002 (Version 1)
Quarter: 2013Q4

REPORT INFORMATION
  Report Type: Spontaneous
  Country: US (occurrence: None)
  Receive Date: 20131223
  Receipt Date: 20131223
  Transmission Date: 20140711
  Serious: No
  Sender: FDA-Public Use
  Company Number: 222762

PATIENT
  Age: 53 Year
  Sex: Female

DRUGS (3)
  1. PICATO (0.015 %) [Suspect]
     Indication: ACTINIC KERATOSIS
     Route: 061
     Dates: start: 20130713, end: 20130714
  2. VITAMIN C [Concomitant]
  3. FATTY ACIDS (FATTY ACIDS NOS) [Concomitant]

REACTIONS (5)
  - Application site vesicles [None]
  - Application site erythema [None]
  - Application site pain [None]
  - Incorrect drug administration duration [None]
  - Drug administered at inappropriate site [None]
